FAERS Safety Report 4786822-6 (Version None)
Quarter: 2005Q4

REPORT INFORMATION
  Report Type: 
  Country: None (occurrence: None)
  Receive Date: 20051004
  Receipt Date: 20050926
  Transmission Date: 20060501
  Serious: Yes (Other)
  Sender: FDA-Public Use
  Company Number: PHEH2005US10667

PATIENT
  Sex: Female

DRUGS (5)
  1. HYDROCHLOROTHIAZIDE [Suspect]
     Indication: HYPERTENSION
  2. COREG [Suspect]
  3. PEGINTERFERON ALFA-2B [Suspect]
     Indication: HEPATITIS C
     Dosage: 118.4 MCG QWEEK
     Dates: start: 20050801, end: 20050901
  4. PEGINTERFERON ALFA-2B [Suspect]
     Dosage: 81MCG QWEEK
     Dates: start: 20050901
  5. REBETOL [Suspect]
     Indication: HEPATITIS C
     Dates: start: 20050801

REACTIONS (7)
  - ASTHENIA [None]
  - BLOOD PRESSURE SYSTOLIC DECREASED [None]
  - HEPATITIS C [None]
  - LETHARGY [None]
  - RESPIRATORY TRACT CONGESTION [None]
  - SYNCOPE [None]
  - VISUAL DISTURBANCE [None]
